FAERS Safety Report 9788595 (Version 3)
Quarter: 2014Q1

REPORT INFORMATION
  Report Type: Spontaneous
  Country: US (occurrence: US)
  Receive Date: 20131230
  Receipt Date: 20140108
  Transmission Date: 20141002
  Serious: Yes (Other)
  Sender: FDA-Public Use
  Company Number: US-TEVA-453125USA

PATIENT
  Age: 40 Year
  Sex: Female
  Weight: 53.57 kg

DRUGS (2)
  1. PROAIR HFA [Suspect]
     Indication: BRONCHOSPASM
  2. SINGULAIR [Concomitant]
     Indication: ASTHMA

REACTIONS (9)
  - Aspiration [Recovered/Resolved]
  - Asthma [Recovered/Resolved]
  - Malaise [Recovered/Resolved]
  - Infection [Not Recovered/Not Resolved]
  - Dyspnoea [Recovered/Resolved]
  - Drug ineffective [Recovered/Resolved]
  - Non-cardiac chest pain [Recovered/Resolved]
  - Dysphonia [Not Recovered/Not Resolved]
  - Device leakage [Unknown]
